FAERS Safety Report 6836796-9 (Version None)
Quarter: 2010Q3

REPORT INFORMATION
  Report Type: 
  Country: None (occurrence: None)
  Receive Date: 20100708
  Receipt Date: 20100617
  Transmission Date: 20110219
  Serious: Yes (Other)
  Sender: FDA-Public Use
  Company Number: AE 2010-116

PATIENT
  Sex: Female

DRUGS (2)
  1. PRIALT [Suspect]
     Dosage: INTRATHECAL
     Route: 037
  2. DILAUDID [Suspect]
     Dosage: INTRATHECAL
     Route: 037

REACTIONS (3)
  - INFLAMMATION [None]
  - MASS [None]
  - MONOPLEGIA [None]
